FAERS Safety Report 7019300-4 (Version None)
Quarter: 2010Q3

REPORT INFORMATION
  Report Type: 
  Country: None (occurrence: None)
  Receive Date: 20100922
  Receipt Date: 20100913
  Transmission Date: 20110219
  Serious: Yes (Congenital Anomaly)
  Sender: FDA-Public Use
  Company Number: 2010MA002681

PATIENT

DRUGS (2)
  1. CITALOPRAM HYDROBROMIDE [Suspect]
     Dosage: TRPL
  2. HEPATITIS B VACCINE (HEPATITIS B VACCINE) [Suspect]
     Dosage: TRPL

REACTIONS (8)
  - ABDOMINAL WALL DISORDER [None]
  - ECTOPIA CORDIS [None]
  - HYDROPS FOETALIS [None]
  - LIMB MALFORMATION [None]
  - LIMB REDUCTION DEFECT [None]
  - MATERNAL DRUGS AFFECTING FOETUS [None]
  - MULTIPLE CONGENITAL ABNORMALITIES [None]
  - PREMATURE BABY [None]
